FAERS Safety Report 13601713 (Version 2)
Quarter: 2017Q2

REPORT INFORMATION
  Report Type: Spontaneous
  Country: JP (occurrence: JP)
  Receive Date: 20170601
  Receipt Date: 20170630
  Transmission Date: 20170830
  Serious: Yes (Other)
  Sender: FDA-Public Use
  Company Number: JP-GUERBET-JP-20170097

PATIENT
  Age: 22 Year
  Sex: Female

DRUGS (4)
  1. HISTOACRYL [Concomitant]
     Active Substance: ENBUCRILATE
     Indication: THERAPEUTIC EMBOLISATION
     Route: 013
     Dates: start: 20160121, end: 20160121
  2. LIPIODOL [Suspect]
     Active Substance: ETHIODIZED OIL
     Indication: THERAPEUTIC EMBOLISATION
     Route: 013
     Dates: start: 20160121, end: 20160121
  3. LIPIODOL [Suspect]
     Active Substance: ETHIODIZED OIL
     Route: 013
     Dates: start: 20160121, end: 20160121
  4. ALCOHOL. [Concomitant]
     Active Substance: ALCOHOL
     Indication: THERAPEUTIC EMBOLISATION
     Route: 013
     Dates: start: 20160121, end: 20160121

REACTIONS (4)
  - Blood lactate dehydrogenase increased [Recovered/Resolved]
  - Pyrexia [Recovered/Resolved]
  - Pain [Recovered/Resolved]
  - Product use in unapproved indication [Unknown]

NARRATIVE: CASE EVENT DATE: 20160121
